FAERS Safety Report 18222683 (Version 1)
Quarter: 2020Q3

REPORT INFORMATION
  Report Type: Spontaneous
  Country: US (occurrence: US)
  Receive Date: 20200902
  Receipt Date: 20200902
  Transmission Date: 20201103
  Serious: No
  Sender: FDA-Public Use
  Company Number: US-SA-2020SA236835

PATIENT

DRUGS (1)
  1. DUPIXENT [Suspect]
     Active Substance: DUPILUMAB
     Indication: SINUS POLYP DEGENERATION
     Dosage: 300 MG, QOW
     Route: 058
     Dates: start: 20200617

REACTIONS (6)
  - Food allergy [Unknown]
  - Injection site swelling [Unknown]
  - Injection site erythema [Unknown]
  - Cough [Unknown]
  - Product use in unapproved indication [Unknown]
  - Parosmia [Unknown]

NARRATIVE: CASE EVENT DATE: 2020
